FAERS Safety Report 10200746 (Version 3)
Quarter: 2015Q1

REPORT INFORMATION
  Report Type: Spontaneous
  Country: AR (occurrence: AR)
  Receive Date: 20140528
  Receipt Date: 20150116
  Transmission Date: 20150720
  Serious: Yes (Hospitalization, Other)
  Sender: FDA-Public Use
  Company Number: AR-AMGEN INC.-ARGSP2012032127

PATIENT
  Age: 67 Year
  Sex: Female

DRUGS (3)
  1. NAPROXEN. [Concomitant]
     Active Substance: NAPROXEN
     Dosage: UNK
  2. TAURAL                             /00550801/ [Concomitant]
     Dosage: UNK
  3. ENBREL [Suspect]
     Active Substance: ETANERCEPT
     Indication: RHEUMATOID ARTHRITIS
     Dosage: 50 MG, WEEKLY
     Route: 058
     Dates: start: 20060504, end: 20141103

REACTIONS (14)
  - Abasia [Not Recovered/Not Resolved]
  - Palpitations [Not Recovered/Not Resolved]
  - Peripheral swelling [Unknown]
  - Nervousness [Not Recovered/Not Resolved]
  - Obesity [Not Recovered/Not Resolved]
  - Dysuria [Recovering/Resolving]
  - Application site swelling [Unknown]
  - Renal disorder [Recovering/Resolving]
  - Gait disturbance [Not Recovered/Not Resolved]
  - General physical health deterioration [Recovering/Resolving]
  - Headache [Not Recovered/Not Resolved]
  - Application site erythema [Unknown]
  - Arthropathy [Not Recovered/Not Resolved]
  - Injection site pain [Not Recovered/Not Resolved]

NARRATIVE: CASE EVENT DATE: 2012
